FAERS Safety Report 19714023 (Version 1)
Quarter: 2021Q3

REPORT INFORMATION
  Report Type: Spontaneous
  Country: US (occurrence: US)
  Receive Date: 20210817
  Receipt Date: 20210817
  Transmission Date: 20211014
  Serious: No
  Sender: FDA-Public Use
  Company Number: None

PATIENT
  Sex: Female

DRUGS (1)
  1. HUMIRA [Suspect]
     Active Substance: ADALIMUMAB
     Indication: HIDRADENITIS
     Dosage: OTHER FREQUENCY:DAY 15;?
     Route: 058
     Dates: start: 20210723

REACTIONS (2)
  - Device malfunction [None]
  - Drug ineffective [None]
